FAERS Safety Report 12905745 (Version 1)
Quarter: 2016Q4

REPORT INFORMATION
  Report Type: Report from Study
  Country: US (occurrence: US)
  Receive Date: 20161103
  Receipt Date: 20161103
  Transmission Date: 20170207
  Serious: Yes (Death, Other)
  Sender: FDA-Public Use
  Company Number: US-ACCORD-045285

PATIENT
  Age: 5 Decade
  Sex: Male

DRUGS (1)
  1. SIMVASTATIN. [Suspect]
     Active Substance: SIMVASTATIN
     Indication: HYPERLIPIDAEMIA

REACTIONS (12)
  - Completed suicide [Fatal]
  - Fatigue [Unknown]
  - Irritability [Unknown]
  - Depression [Unknown]
  - Abnormal behaviour [Unknown]
  - Personality disorder [Unknown]
  - Dissociation [Unknown]
  - Anxiety [Unknown]
  - Insomnia [Unknown]
  - Mood altered [Unknown]
  - Disturbance in attention [Unknown]
  - Impatience [Unknown]
